FAERS Safety Report 10241634 (Version 1)
Quarter: 2014Q2

REPORT INFORMATION
  Report Type: Spontaneous
  Country: US (occurrence: US)
  Receive Date: 20140617
  Receipt Date: 20140617
  Transmission Date: 20141212
  Serious: Yes (Other)
  Sender: FDA-Public Use
  Company Number: US-TEVA-488786USA

PATIENT
  Age: 46 Year
  Sex: Female
  Weight: 60.38 kg

DRUGS (2)
  1. PARAGARD 380A [Suspect]
     Indication: CONTRACEPTION
     Route: 015
     Dates: start: 2010
  2. MULTIVITAMIN [Concomitant]
     Indication: SUPPLEMENTATION THERAPY

REACTIONS (2)
  - Device dislocation [Not Recovered/Not Resolved]
  - Pelvic pain [Not Recovered/Not Resolved]
